FAERS Safety Report 12269274 (Version 3)
Quarter: 2016Q2

REPORT INFORMATION
  Report Type: Report from Study
  Country: US (occurrence: US)
  Receive Date: 20160414
  Receipt Date: 20160616
  Transmission Date: 20160815
  Serious: Yes (Other)
  Sender: FDA-Public Use
  Company Number: US-BAYER-2016-067383

PATIENT
  Age: 76 Year
  Sex: Male
  Weight: 81 kg

DRUGS (10)
  1. COUMADIN [Concomitant]
     Active Substance: WARFARIN SODIUM
     Dosage: 5 MG, QD
     Route: 048
     Dates: start: 20150512
  2. NAPROXEN. [Concomitant]
     Active Substance: NAPROXEN
     Dosage: 250 MG, BID
     Route: 048
  3. ATENOLOL. [Concomitant]
     Active Substance: ATENOLOL
     Dosage: 25 MG, QD
     Route: 048
     Dates: start: 20150512
  4. COUMADIN [Concomitant]
     Active Substance: WARFARIN SODIUM
     Dosage: 2 MG, QD
     Route: 048
     Dates: start: 20150723
  5. LORAZEPAM. [Concomitant]
     Active Substance: LORAZEPAM
     Dosage: 1 MG, QID
     Route: 048
     Dates: start: 20160321
  6. STIVARGA [Suspect]
     Active Substance: REGORAFENIB
     Indication: METASTASES TO BONE
  7. STIVARGA [Suspect]
     Active Substance: REGORAFENIB
     Indication: COLORECTAL CANCER METASTATIC
     Dosage: 160 MG (40 MG, 4 TABLETS, DAILY)
     Route: 048
     Dates: start: 20160331, end: 20160408
  8. CAPECITABINE. [Concomitant]
     Active Substance: CAPECITABINE
     Dosage: 1 G, BID WITH SCHEDULE OF ONE WEEK ON AND ONE WEEK OFF
  9. PROMETHAZINE [Concomitant]
     Active Substance: PROMETHAZINE\PROMETHAZINE HYDROCHLORIDE
     Indication: NAUSEA
     Dosage: 25 MG Q 6H
     Route: 048
     Dates: start: 20160328
  10. MORPHINE [Concomitant]
     Active Substance: MORPHINE

REACTIONS (24)
  - Arthralgia [None]
  - Hypersomnia [None]
  - Chronic kidney disease [None]
  - Bladder irritation [None]
  - Tremor [Recovered/Resolved]
  - Back pain [None]
  - International normalised ratio increased [None]
  - General physical health deterioration [None]
  - Autonomic neuropathy [None]
  - Abnormal dreams [None]
  - Gait disturbance [None]
  - Chromaturia [Not Recovered/Not Resolved]
  - Pallor [None]
  - Dysphonia [Not Recovered/Not Resolved]
  - Dysuria [None]
  - Blood pressure increased [Recovered/Resolved]
  - Confusional state [Recovered/Resolved]
  - Protein urine present [None]
  - Heart rate increased [Recovered/Resolved]
  - Haemorrhage [None]
  - Cachexia [None]
  - Pelvic pain [None]
  - Blood urine present [None]
  - Anaemia [None]

NARRATIVE: CASE EVENT DATE: 201604
